FAERS Safety Report 6534388-2 (Version None)
Quarter: 2010Q1

REPORT INFORMATION
  Report Type: 
  Country: None (occurrence: None)
  Receive Date: 20100112
  Receipt Date: 20100104
  Transmission Date: 20100710
  Serious: Yes (Life-Threatening, Hospitalization)
  Sender: FDA-Public Use
  Company Number: DE-ROCHE-673774

PATIENT
  Sex: Female
  Weight: 78 kg

DRUGS (3)
  1. HERCEPTIN [Suspect]
     Dosage: FIRST DOSE ON 14 OCT 2008: 8 MG/KG SECOND DOSE ON 4 NOV 2008: 6 MG/KG
     Route: 042
     Dates: start: 20081014, end: 20081104
  2. DELIX 5 PLUS [Concomitant]
     Indication: HYPERTENSION
     Route: 048
  3. BISOPROLOL FUMARATE [Concomitant]
     Indication: HYPERTENSION
     Route: 048

REACTIONS (3)
  - ACUTE MYOCARDIAL INFARCTION [None]
  - ATRIAL FIBRILLATION [None]
  - TACHYARRHYTHMIA [None]
